FAERS Safety Report 9012350 (Version 3)
Quarter: 2013Q1

REPORT INFORMATION
  Report Type: Spontaneous
  Country: ES (occurrence: None)
  Receive Date: 20121231
  Receipt Date: 20130125
  Transmission Date: 20140127
  Serious: Yes (Hospitalization)
  Sender: FDA-Public Use
  Company Number: MPS1-1000898

PATIENT
  Age: 12 Year
  Sex: Male
  Weight: 35 kg

DRUGS (13)
  1. ALDURAZYME (LARONIDASE) CONCENTRATE FOR SOLUTION FOR INFUSION [Suspect]
     Indication: MUCOPOLYSACCHARIDOSIS I
     Route: 042
     Dates: start: 2003
  2. URBASON [Concomitant]
  3. POLARAMINE (DEXCHLORPHENIRAMINE MALEATE) [Concomitant]
  4. FLIXOTIDE (FLUTICASONE PROPIONATE) [Concomitant]
  5. VENTOLIN (SALBUTAMOL SULFATE) [Concomitant]
  6. LUMINAL (PHENOBARBITAL SODIUM) [Concomitant]
  7. KEPRA (LEVETIRACETAM) [Concomitant]
  8. URSACOL (URSODEOXYCHOLICACID) [Concomitant]
  9. MOTILIUM (DOMPERIDONE MALEATE) [Concomitant]
  10. OMEPRAZOLE (OMEPRAZOLE) [Concomitant]
  11. XALATAN (LATANOPROST) [Concomitant]
  12. SEGURIL (FUROSEMIDE) [Concomitant]
  13. AMOXICILLIN COMP (AMOXICILLIN TRIHYDRATE, CLAVULANATE POTASSIUM) [Concomitant]

REACTIONS (8)
  - Acute pulmonary oedema [None]
  - Increased bronchial secretion [None]
  - Hyperventilation [None]
  - Cold sweat [None]
  - Tachypnoea [None]
  - Tachycardia [None]
  - Hypertension [None]
  - Oxygen saturation decreased [None]
